FAERS Safety Report 8439294-4 (Version None)
Quarter: 2012Q2

REPORT INFORMATION
  Report Type: 
  Country: None (occurrence: None)
  Receive Date: 20120615
  Receipt Date: 20120612
  Transmission Date: 20120825
  Serious: Yes (Other)
  Sender: FDA-Public Use
  Company Number: PHEH2012US011809

PATIENT
  Sex: Female
  Weight: 81.647 kg

DRUGS (1)
  1. DIOVAN [Suspect]
     Dosage: ONCE DAILY

REACTIONS (1)
  - PULMONARY EMBOLISM [None]
